FAERS Safety Report 6228168-5 (Version None)
Quarter: 2009Q2

REPORT INFORMATION
  Report Type: 
  Country: None (occurrence: None)
  Receive Date: 20090612
  Receipt Date: 20090609
  Transmission Date: 20091009
  Serious: Yes (Life-Threatening, Hospitalization, Other)
  Sender: FDA-Public Use
  Company Number: FR-BRISTOL-MYERS SQUIBB COMPANY-14428775

PATIENT
  Age: 50 Year
  Sex: Male
  Weight: 92 kg

DRUGS (6)
  1. ABILIFY [Suspect]
     Indication: DEPRESSION
     Route: 048
     Dates: start: 20080701, end: 20081101
  2. ABILIFY [Suspect]
     Indication: PERSONALITY DISORDER
     Route: 048
     Dates: start: 20080701, end: 20081101
  3. ANAFRANIL [Suspect]
     Indication: DEPRESSION
     Route: 048
     Dates: start: 20081001
  4. SEROPLEX [Suspect]
     Indication: DEPRESSION
     Dosage: TAB
     Route: 048
     Dates: start: 20080701, end: 20081101
  5. TERCIAN [Suspect]
     Indication: DEPRESSION
     Route: 048
     Dates: start: 20080701
  6. TERCIAN [Suspect]
     Indication: PERSONALITY DISORDER
     Route: 048
     Dates: start: 20080701

REACTIONS (2)
  - PULMONARY EMBOLISM [None]
  - THROMBOSIS [None]
